FAERS Safety Report 21362427 (Version 2)
Quarter: 2022Q3

REPORT INFORMATION
  Report Type: Report from Study
  Country: US (occurrence: US)
  Receive Date: 20220922
  Receipt Date: 20220929
  Transmission Date: 20221026
  Serious: Yes (Other)
  Sender: FDA-Public Use
  Company Number: US-ABBVIE-4127604

PATIENT
  Age: 55 Year
  Sex: Female

DRUGS (1)
  1. HUMIRA [Suspect]
     Active Substance: ADALIMUMAB
     Indication: Uveitis
     Route: 058
     Dates: end: 202203

REACTIONS (5)
  - Cataract [Unknown]
  - Hernia [Unknown]
  - Injection site bruising [Unknown]
  - Injection site pain [Unknown]
  - Injection site swelling [Unknown]

NARRATIVE: CASE EVENT DATE: 20220801
